FAERS Safety Report 24322599 (Version 1)
Quarter: 2024Q3

REPORT INFORMATION
  Report Type: Spontaneous
  Country: CN (occurrence: CN)
  Receive Date: 20240916
  Receipt Date: 20240916
  Transmission Date: 20241017
  Serious: Yes (Death)
  Sender: STRIDES
  Company Number: CN-STRIDES ARCOLAB LIMITED-2024SP011643

PATIENT
  Age: 36 Year
  Sex: Female

DRUGS (4)
  1. ETOPOSIDE [Suspect]
     Active Substance: ETOPOSIDE
     Indication: Embryonal rhabdomyosarcoma
     Dosage: 0.1 GRAM, CYCLICAL (AS A PART OF IA FROM VAC/IA REGIMEN, FOR 1-5 DAYS)
     Route: 065
  2. VINORELBINE [Suspect]
     Active Substance: VINORELBINE TARTRATE
     Indication: Embryonal rhabdomyosarcoma
     Dosage: 38 MILLIGRAM, CYCLICAL (AS A PART OF VAC FROM VAC/IA REGIMEN)
     Route: 065
  3. CYCLOPHOSPHAMIDE [Suspect]
     Active Substance: CYCLOPHOSPHAMIDE
     Indication: Embryonal rhabdomyosarcoma
     Dosage: 1.4 MILLIGRAM, CYCLICAL (AS A PART OF VAC FROM VAC/IA REGIMEN)
     Route: 065
  4. CYCLOPHOSPHAMIDE [Suspect]
     Active Substance: CYCLOPHOSPHAMIDE
     Dosage: 2.5 GRAM, CYCLICAL (AS A PART OF IA FROM VAC/IA REGIMEN, FOR 1?5 DAYS)
     Route: 065

REACTIONS (3)
  - Cerebral haemorrhage [Fatal]
  - Acute myeloid leukaemia [Fatal]
  - Off label use [Unknown]

NARRATIVE: CASE EVENT DATE: 20210710
